FAERS Safety Report 5679966-8 (Version None)
Quarter: 2008Q1

REPORT INFORMATION
  Report Type: 
  Country: None (occurrence: None)
  Receive Date: 20080326
  Receipt Date: 20080313
  Transmission Date: 20080703
  Serious: Yes (Other)
  Sender: FDA-Public Use
  Company Number: ES-RANBAXY-2008RR-13787

PATIENT

DRUGS (4)
  1. ACICLOVIR RANBAXY 200MG COMPRIDOS EFG [Suspect]
     Dosage: 200 MG, UNK
     Route: 048
  2. ZOVIRAX [Concomitant]
     Route: 061
  3. FANCICLOVIR [Concomitant]
  4. CIDOFOVIR [Concomitant]

REACTIONS (1)
  - HYPERSENSITIVITY [None]
